FAERS Safety Report 4990596-3 (Version None)
Quarter: 2006Q2

REPORT INFORMATION
  Report Type: 
  Country: None (occurrence: None)
  Receive Date: 20060501
  Receipt Date: 20060501
  Transmission Date: 20061013
  Serious: Yes (Hospitalization)
  Sender: FDA-Public Use
  Company Number: None

PATIENT
  Sex: Female

DRUGS (2)
  1. DOCETAXEL [Suspect]
     Indication: LUNG NEOPLASM MALIGNANT
     Dosage: 30 MG/M2 DAY 1 + 8
     Dates: start: 20050406
  2. OXALIPLATIN [Suspect]
     Indication: LUNG NEOPLASM MALIGNANT
     Dosage: 85 MG/M2 DAY 1 + 15
     Dates: start: 20050406

REACTIONS (2)
  - DEHYDRATION [None]
  - FATIGUE [None]
